FAERS Safety Report 12577390 (Version 1)
Quarter: 2016Q3

REPORT INFORMATION
  Report Type: Spontaneous
  Country: US (occurrence: US)
  Receive Date: 20160720
  Receipt Date: 20160720
  Transmission Date: 20161109
  Serious: Yes (Hospitalization, Other)
  Sender: FDA-Public Use
  Company Number: US-ASTRAZENECA-2014SE18226

PATIENT
  Age: 71 Year
  Sex: Female
  Weight: 56.2 kg

DRUGS (18)
  1. VAGIFEM [Concomitant]
     Active Substance: ESTRADIOL
     Indication: BLADDER PROLAPSE
     Dosage: 1 TABLET, TWICE WEEKLY
     Route: 067
  2. PULMICORT FLEXHALER [Suspect]
     Active Substance: BUDESONIDE
     Indication: ASTHMA
     Dosage: 180 MCG, 1 PUFFS BID
     Route: 055
     Dates: end: 20140313
  3. PROAIR HFA [Concomitant]
     Active Substance: ALBUTEROL SULFATE
  4. PULMICORT FLEXHALER [Suspect]
     Active Substance: BUDESONIDE
     Indication: ASTHMA
     Dosage: 1 PUFF ONCE A DAY
     Route: 055
     Dates: start: 20120606
  5. PULMICORT FLEXHALER [Suspect]
     Active Substance: BUDESONIDE
     Indication: ASTHMA
     Route: 055
     Dates: end: 20140313
  6. PANTOPRAZOLE [Concomitant]
     Active Substance: PANTOPRAZOLE SODIUM
     Indication: GASTROOESOPHAGEAL REFLUX DISEASE
     Route: 048
  7. ESTRACE [Concomitant]
     Active Substance: ESTRADIOL
     Indication: BLADDER PROLAPSE
     Dosage: THREE TIMES WEEKLY
     Route: 067
  8. PULMICORT FLEXHALER [Suspect]
     Active Substance: BUDESONIDE
     Indication: WHEEZING
     Dosage: 1 PUFF ONCE A DAY
     Route: 055
     Dates: start: 20120606
  9. PULMICORT FLEXHALER [Suspect]
     Active Substance: BUDESONIDE
     Indication: WHEEZING
     Dosage: 180 MCG, 1 PUFFS BID
     Route: 055
     Dates: end: 20140313
  10. ESTRACE [Concomitant]
     Active Substance: ESTRADIOL
     Indication: DRY SKIN
     Dosage: THREE TIMES WEEKLY
     Route: 067
  11. PULMICORT FLEXHALER [Suspect]
     Active Substance: BUDESONIDE
     Indication: WHEEZING
     Route: 055
     Dates: end: 20140313
  12. VAGIFEM [Concomitant]
     Active Substance: ESTRADIOL
     Indication: DRY SKIN
     Dosage: 1 TABLET, TWICE WEEKLY
     Route: 067
  13. PULMICORT FLEXHALER [Suspect]
     Active Substance: BUDESONIDE
     Indication: ASTHMA
     Dosage: AS NEEDED
     Route: 055
  14. PULMICORT FLEXHALER [Suspect]
     Active Substance: BUDESONIDE
     Indication: WHEEZING
     Dosage: AS NEEDED
     Route: 055
  15. METOPROLOL TARTRATE. [Suspect]
     Active Substance: METOPROLOL TARTRATE
     Indication: CARDIAC DISORDER
     Route: 048
     Dates: start: 20140227
  16. FLECANAIDE [Concomitant]
     Indication: CARDIAC DISORDER
     Route: 048
     Dates: start: 20140227
  17. SYMBICORT [Suspect]
     Active Substance: BUDESONIDE\FORMOTEROL FUMARATE DIHYDRATE
     Dosage: UNKNOWN
     Route: 055
  18. MAGNESIUM OXIDE. [Concomitant]
     Active Substance: MAGNESIUM OXIDE
     Route: 048
     Dates: start: 20140227

REACTIONS (19)
  - Humerus fracture [Unknown]
  - Hypoacusis [Unknown]
  - Body height decreased [Not Recovered/Not Resolved]
  - Malaise [Unknown]
  - Dysstasia [Recovered/Resolved]
  - Osteoporosis [Unknown]
  - Dyspnoea [Unknown]
  - Stress [Unknown]
  - Intentional product misuse [Unknown]
  - Product quality issue [Unknown]
  - Ventricular extrasystoles [Unknown]
  - Wheezing [Unknown]
  - Fatigue [Unknown]
  - Asthenia [Not Recovered/Not Resolved]
  - Drug dose omission [Not Recovered/Not Resolved]
  - Drug administered to patient of inappropriate age [Unknown]
  - Anxiety [Unknown]
  - Hypersensitivity [Unknown]
  - Off label use [Unknown]

NARRATIVE: CASE EVENT DATE: 2005
